FAERS Safety Report 6445302-2 (Version None)
Quarter: 2009Q4

REPORT INFORMATION
  Report Type: 
  Country: None (occurrence: None)
  Receive Date: 20091116
  Receipt Date: 20091030
  Transmission Date: 20100525
  Serious: Yes (Death, Other)
  Sender: FDA-Public Use
  Company Number: AUR-APL-2009-01154

PATIENT
  Age: 39 Year
  Sex: Female

DRUGS (3)
  1. CITALOPRAM HYDROBROMIDE [Suspect]
  2. ALPRAZOLAM [Suspect]
  3. BUPROPION HCL [Suspect]

REACTIONS (4)
  - ACCIDENTAL EXPOSURE [None]
  - ARTERIOSCLEROSIS CORONARY ARTERY [None]
  - DRUG TOXICITY [None]
  - EMPHYSEMA [None]
